FAERS Safety Report 25866631 (Version 1)
Quarter: 2025Q3

REPORT INFORMATION
  Report Type: Spontaneous
  Country: JP (occurrence: JP)
  Receive Date: 20250930
  Receipt Date: 20250930
  Transmission Date: 20251021
  Serious: Yes (Other)
  Sender: GENMAB
  Company Number: JP-GENMAB-2025-02893

PATIENT
  Age: 55 Year
  Sex: Female

DRUGS (2)
  1. EPKINLY [Suspect]
     Active Substance: EPCORITAMAB-BYSP
     Indication: Diffuse large B-cell lymphoma
     Route: 058
     Dates: start: 20250709, end: 2025
  2. EPKINLY [Suspect]
     Active Substance: EPCORITAMAB-BYSP
     Route: 058
     Dates: start: 2025, end: 202509

REACTIONS (1)
  - Diffuse large B-cell lymphoma [Not Recovered/Not Resolved]

NARRATIVE: CASE EVENT DATE: 20250918
